FAERS Safety Report 16892265 (Version 1)
Quarter: 2019Q4

REPORT INFORMATION
  Report Type: Spontaneous
  Country: GB (occurrence: GB)
  Receive Date: 20191007
  Receipt Date: 20191007
  Transmission Date: 20200122
  Serious: Yes (Life-Threatening, Hospitalization)
  Sender: FDA-Public Use
  Company Number: GB-ASTRAZENECA-2019SF40037

PATIENT
  Age: 42 Year
  Sex: Female
  Weight: 125 kg

DRUGS (4)
  1. GABAPENTIN. [Concomitant]
     Active Substance: GABAPENTIN
  2. THYROXINE [Concomitant]
     Active Substance: LEVOTHYROXINE
  3. DAPAGLIFLOZIN. [Suspect]
     Active Substance: DAPAGLIFLOZIN
     Indication: TYPE 2 DIABETES MELLITUS
     Dosage: 10.0MG UNKNOWN
     Route: 048
     Dates: start: 20190626, end: 20190914
  4. VALPROIC ACID. [Concomitant]
     Active Substance: VALPROIC ACID

REACTIONS (3)
  - Vomiting [Unknown]
  - Headache [Unknown]
  - Diabetic ketoacidosis [Recovering/Resolving]

NARRATIVE: CASE EVENT DATE: 20190913
